FAERS Safety Report 10021070 (Version 3)
Quarter: 2014Q2

REPORT INFORMATION
  Report Type: Spontaneous
  Country: US (occurrence: US)
  Receive Date: 20140319
  Receipt Date: 20140604
  Transmission Date: 20141212
  Serious: Yes (Hospitalization, Other)
  Sender: FDA-Public Use
  Company Number: US-TEVA-462773USA

PATIENT
  Age: 64 Year
  Sex: Female
  Weight: 77.63 kg

DRUGS (8)
  1. PROVIGIL [Suspect]
     Indication: SOMNOLENCE
     Dosage: BID
     Route: 048
  2. AMPYRA [Suspect]
     Indication: GAIT DISTURBANCE
     Dosage: 20 MILLIGRAM DAILY;
     Dates: start: 201311
  3. PAXIL [Concomitant]
  4. ZANAFLEX [Concomitant]
  5. NEXIUM [Concomitant]
  6. PREDNISONE [Concomitant]
  7. XANAX [Concomitant]
  8. WELLBUTRIN [Concomitant]

REACTIONS (8)
  - Surgery [Unknown]
  - Insomnia [Not Recovered/Not Resolved]
  - Off label use [Unknown]
  - Arthralgia [Not Recovered/Not Resolved]
  - Gait disturbance [Unknown]
  - Back pain [Unknown]
  - Hypersomnia [Unknown]
  - Off label use [Unknown]
